FAERS Safety Report 21670449 (Version 3)
Quarter: 2024Q3

REPORT INFORMATION
  Report Type: Spontaneous
  Country: AU (occurrence: AU)
  Receive Date: 20221201
  Receipt Date: 20240911
  Transmission Date: 20241016
  Serious: Yes (Hospitalization, Other)
  Sender: ASTELLAS
  Company Number: AU-ASTELLAS-2022US042511

PATIENT
  Age: 72 Year
  Sex: Female

DRUGS (7)
  1. TACROLIMUS [Suspect]
     Active Substance: TACROLIMUS
     Indication: Heart transplant
     Route: 065
  2. PREDNISOLONE [Concomitant]
     Active Substance: PREDNISOLONE
     Indication: Heart transplant
     Route: 048
  3. PREDNISOLONE [Concomitant]
     Active Substance: PREDNISOLONE
     Indication: Heart transplant rejection
     Dosage: 10 MG, ONCE DAILY
     Route: 048
  4. BASILIXIMAB [Concomitant]
     Active Substance: BASILIXIMAB
     Indication: Heart transplant
     Route: 065
  5. METHYLPREDNISOLONE [Concomitant]
     Active Substance: METHYLPREDNISOLONE
     Indication: Heart transplant
     Route: 042
  6. MYCOPHENOLATE MOFETIL [Concomitant]
     Active Substance: MYCOPHENOLATE MOFETIL
     Indication: Heart transplant
     Dosage: REDUCED
     Route: 065
  7. ITRACONAZOLE [Concomitant]
     Active Substance: ITRACONAZOLE
     Indication: Prophylaxis
     Dosage: UNK UNK, UNKNOWN FREQ. (THERAPEUTIC RANGE: 500-1000 UG/L)
     Route: 065

REACTIONS (4)
  - Bronchopulmonary aspergillosis [Recovered/Resolved]
  - Disseminated aspergillosis [Recovered/Resolved]
  - Mycotic endophthalmitis [Recovered/Resolved]
  - Cerebral fungal infection [Recovered/Resolved]
